FAERS Safety Report 9444061 (Version 2)
Quarter: 2013Q4

REPORT INFORMATION
  Report Type: Report from Study
  Country: AU (occurrence: AU)
  Receive Date: 20130807
  Receipt Date: 20131106
  Transmission Date: 20140711
  Serious: Yes (Other)
  Sender: FDA-Public Use
  Company Number: AU-ROCHE-1258485

PATIENT
  Age: 59 Year
  Sex: Male

DRUGS (7)
  1. ACTEMRA [Suspect]
     Indication: RHEUMATOID ARTHRITIS
     Route: 042
     Dates: start: 20121120
  2. METHOTREXATE [Concomitant]
     Indication: RHEUMATOID ARTHRITIS
     Route: 058
     Dates: start: 201307
  3. PREDNISONE [Concomitant]
     Indication: RHEUMATOID ARTHRITIS
     Dosage: STARTED 2.5 YEARS AGO;
     Route: 048
  4. PREDNISONE [Concomitant]
     Dosage: STARTED 2 YEARS AGO;
     Route: 048
  5. FOLATE [Concomitant]
     Dosage: STARTED 3 MONTHS AGO
     Route: 048
  6. PANADEINE FORTE [Concomitant]
     Dosage: 2-4 TABLETS PRN EVERY 6 HOURS STARTED 2 YEARS AGO
     Route: 048
  7. NEXIUM [Concomitant]
     Dosage: STARTED 2.5 YEARS AGO
     Route: 048

REACTIONS (2)
  - Heart rate irregular [Recovering/Resolving]
  - Arrhythmia [Recovered/Resolved]
